FAERS Safety Report 7507918-1 (Version None)
Quarter: 2011Q2

REPORT INFORMATION
  Report Type: 
  Country: None (occurrence: None)
  Receive Date: 20110527
  Receipt Date: 20110513
  Transmission Date: 20111010
  Serious: Yes (Hospitalization, Other)
  Sender: FDA-Public Use
  Company Number: DE-RANBAXY-2011RR-44668

PATIENT
  Age: 3 Year
  Sex: Male

DRUGS (1)
  1. CEFACLOR [Suspect]
     Indication: INFLAMMATION
     Dosage: UNK
     Dates: start: 20110503

REACTIONS (4)
  - DYSPNOEA [None]
  - URTICARIA [None]
  - RASH [None]
  - JOINT SWELLING [None]
